FAERS Safety Report 8146910 (Version 8)
Quarter: 2013Q2

REPORT INFORMATION
  Report Type: Spontaneous
  Country: US (occurrence: US)
  Receive Date: 20110921
  Receipt Date: 20130603
  Transmission Date: 20140414
  Serious: Yes (Hospitalization)
  Sender: FDA-Public Use
  Company Number: US-ASTRAZENECA-2010SE57777

PATIENT
  Age: 60 Year
  Sex: Male
  Weight: 90.7 kg

DRUGS (94)
  1. NEXIUM [Suspect]
     Indication: GASTROOESOPHAGEAL REFLUX DISEASE
     Route: 048
  2. NEXIUM [Suspect]
     Indication: HIATUS HERNIA
     Route: 048
  3. NEXIUM [Suspect]
     Indication: ULCER
     Route: 048
  4. NEXIUM [Suspect]
     Indication: GASTROOESOPHAGEAL REFLUX DISEASE
     Route: 048
  5. NEXIUM [Suspect]
     Indication: GASTROOESOPHAGEAL REFLUX DISEASE
     Route: 048
  6. NEXIUM [Suspect]
     Indication: HIATUS HERNIA
     Route: 048
  7. NEXIUM [Suspect]
     Indication: ULCER
     Route: 048
  8. NEXIUM [Suspect]
     Indication: GASTROOESOPHAGEAL REFLUX DISEASE
     Route: 048
  9. SEROQUEL [Suspect]
     Indication: BIPOLAR DISORDER
     Route: 048
     Dates: start: 20100208
  10. SEROQUEL [Suspect]
     Indication: DEPRESSION
     Route: 048
     Dates: start: 20100208
  11. SEROQUEL [Suspect]
     Indication: DEPRESSION
     Route: 048
     Dates: start: 20100208
  12. SEROQUEL [Suspect]
     Indication: SLEEP DISORDER
     Route: 048
     Dates: start: 20100208
  13. SEROQUEL [Suspect]
     Indication: SCHIZOAFFECTIVE DISORDER
     Route: 048
     Dates: start: 20100208
  14. SEROQUEL [Suspect]
     Indication: BIPOLAR DISORDER
     Route: 048
     Dates: start: 20100423
  15. SEROQUEL [Suspect]
     Indication: DEPRESSION
     Route: 048
     Dates: start: 20100423
  16. SEROQUEL [Suspect]
     Indication: DEPRESSION
     Route: 048
     Dates: start: 20100423
  17. SEROQUEL [Suspect]
     Indication: SLEEP DISORDER
     Route: 048
     Dates: start: 20100423
  18. SEROQUEL [Suspect]
     Indication: SCHIZOAFFECTIVE DISORDER
     Route: 048
     Dates: start: 20100423
  19. SEROQUEL [Suspect]
     Indication: BIPOLAR DISORDER
     Route: 048
     Dates: start: 20100423
  20. SEROQUEL [Suspect]
     Indication: DEPRESSION
     Route: 048
     Dates: start: 20100423
  21. SEROQUEL [Suspect]
     Indication: DEPRESSION
     Route: 048
     Dates: start: 20100423
  22. SEROQUEL [Suspect]
     Indication: SLEEP DISORDER
     Route: 048
     Dates: start: 20100423
  23. SEROQUEL [Suspect]
     Indication: SCHIZOAFFECTIVE DISORDER
     Route: 048
     Dates: start: 20100423
  24. SEROQUEL [Suspect]
     Indication: BIPOLAR DISORDER
     Dosage: TAKING 300 MG ONE AND 400 MG ONE AT NIGHT
     Route: 048
  25. SEROQUEL [Suspect]
     Indication: DEPRESSION
     Dosage: TAKING 300 MG ONE AND 400 MG ONE AT NIGHT
     Route: 048
  26. SEROQUEL [Suspect]
     Indication: DEPRESSION
     Dosage: TAKING 300 MG ONE AND 400 MG ONE AT NIGHT
     Route: 048
  27. SEROQUEL [Suspect]
     Indication: SLEEP DISORDER
     Dosage: TAKING 300 MG ONE AND 400 MG ONE AT NIGHT
     Route: 048
  28. SEROQUEL [Suspect]
     Indication: SCHIZOAFFECTIVE DISORDER
     Dosage: TAKING 300 MG ONE AND 400 MG ONE AT NIGHT
     Route: 048
  29. SEROQUEL [Suspect]
     Indication: BIPOLAR DISORDER
     Route: 048
     Dates: start: 201004
  30. SEROQUEL [Suspect]
     Indication: DEPRESSION
     Route: 048
     Dates: start: 201004
  31. SEROQUEL [Suspect]
     Indication: DEPRESSION
     Route: 048
     Dates: start: 201004
  32. SEROQUEL [Suspect]
     Indication: SLEEP DISORDER
     Route: 048
     Dates: start: 201004
  33. SEROQUEL [Suspect]
     Indication: SCHIZOAFFECTIVE DISORDER
     Route: 048
     Dates: start: 201004
  34. SEROQUEL [Suspect]
     Indication: BIPOLAR DISORDER
     Route: 048
  35. SEROQUEL [Suspect]
     Indication: DEPRESSION
     Route: 048
  36. SEROQUEL [Suspect]
     Indication: DEPRESSION
     Route: 048
  37. SEROQUEL [Suspect]
     Indication: SLEEP DISORDER
     Route: 048
  38. SEROQUEL [Suspect]
     Indication: SCHIZOAFFECTIVE DISORDER
     Route: 048
  39. SEROQUEL [Suspect]
     Indication: BIPOLAR DISORDER
     Route: 048
  40. SEROQUEL [Suspect]
     Indication: DEPRESSION
     Route: 048
  41. SEROQUEL [Suspect]
     Indication: DEPRESSION
     Route: 048
  42. SEROQUEL [Suspect]
     Indication: SLEEP DISORDER
     Route: 048
  43. SEROQUEL [Suspect]
     Indication: SCHIZOAFFECTIVE DISORDER
     Route: 048
  44. SEROQUEL [Suspect]
     Indication: BIPOLAR DISORDER
     Route: 048
  45. SEROQUEL [Suspect]
     Indication: DEPRESSION
     Route: 048
  46. SEROQUEL [Suspect]
     Indication: DEPRESSION
     Route: 048
  47. SEROQUEL [Suspect]
     Indication: SLEEP DISORDER
     Route: 048
  48. SEROQUEL [Suspect]
     Indication: SCHIZOAFFECTIVE DISORDER
     Route: 048
  49. SEROQUEL [Suspect]
     Indication: BIPOLAR DISORDER
     Route: 048
     Dates: start: 201204
  50. SEROQUEL [Suspect]
     Indication: DEPRESSION
     Route: 048
     Dates: start: 201204
  51. SEROQUEL [Suspect]
     Indication: DEPRESSION
     Route: 048
     Dates: start: 201204
  52. SEROQUEL [Suspect]
     Indication: SLEEP DISORDER
     Route: 048
     Dates: start: 201204
  53. SEROQUEL [Suspect]
     Indication: SCHIZOAFFECTIVE DISORDER
     Route: 048
     Dates: start: 201204
  54. SEROQUEL [Suspect]
     Indication: BIPOLAR DISORDER
     Route: 048
     Dates: start: 201204, end: 2012
  55. SEROQUEL [Suspect]
     Indication: DEPRESSION
     Route: 048
     Dates: start: 201204, end: 2012
  56. SEROQUEL [Suspect]
     Indication: DEPRESSION
     Route: 048
     Dates: start: 201204, end: 2012
  57. SEROQUEL [Suspect]
     Indication: SLEEP DISORDER
     Route: 048
     Dates: start: 201204, end: 2012
  58. SEROQUEL [Suspect]
     Indication: SCHIZOAFFECTIVE DISORDER
     Route: 048
     Dates: start: 201204, end: 2012
  59. LISINOPRIL [Concomitant]
     Indication: HYPERTENSION
     Route: 048
  60. LISINOPRIL [Concomitant]
     Indication: HYPERTENSION
     Route: 048
  61. VIT C [Concomitant]
  62. CALCIUM [Concomitant]
  63. FISH OIL [Concomitant]
  64. GLIPIZIDE [Concomitant]
  65. GLIPIZIDE [Concomitant]
     Dosage: 2, 5 MG BID
  66. LEVOTHYROXIN [Concomitant]
     Indication: HYPOTHYROIDISM
  67. LEVOTHYROXIN [Concomitant]
     Indication: HYPOTHYROIDISM
  68. LORAZEPAM [Concomitant]
     Indication: BIPOLAR DISORDER
  69. LORAZEPAM [Concomitant]
     Indication: ANXIETY
  70. LORAZEPAM [Concomitant]
     Indication: BIPOLAR DISORDER
  71. LORAZEPAM [Concomitant]
     Indication: ANXIETY
  72. SIMVASTATIN [Concomitant]
  73. TOPAMAX [Concomitant]
     Indication: BIPOLAR DISORDER
     Dosage: TWICE A DAY
  74. TOPAMAX [Concomitant]
     Indication: BIPOLAR DISORDER
  75. WELLBUTRIN XL [Concomitant]
     Indication: DEPRESSION
  76. GLICLAZIDE [Concomitant]
  77. IRON PILLS [Concomitant]
  78. EYE DROPS [Concomitant]
     Indication: OPEN ANGLE GLAUCOMA
  79. DEPAKOTE [Concomitant]
  80. IONPILL FERROUS SULFATE [Concomitant]
  81. ATIVAN [Concomitant]
  82. JANUVIA [Concomitant]
  83. LUMIGAN [Concomitant]
     Dosage: OU, ONE DROP
  84. BUTRIN [Concomitant]
  85. CENTRUM ULTRUM [Concomitant]
  86. JANUMET [Concomitant]
     Dosage: 50MG/500MG BID
  87. LATANOPROST [Concomitant]
     Indication: OPEN ANGLE GLAUCOMA
     Dosage: 1 DROP BOTH EYES AT NIGHT
  88. BRIMONIDINE TARTRATE [Concomitant]
     Indication: OPEN ANGLE GLAUCOMA
     Dosage: 1 DROP BOTH EYES TID
  89. TIMOLOL MALEATE [Concomitant]
     Indication: OPEN ANGLE GLAUCOMA
     Dosage: 1 DROP BOTH EYES BID
  90. LIPITOR [Concomitant]
  91. IRON [Concomitant]
     Indication: IRON DEFICIENCY ANAEMIA
  92. TEGRETOL [Concomitant]
  93. LITHIUM [Concomitant]
  94. PURITY PRODUCT PERFECT SUPER GREENS [Concomitant]
     Indication: SUPPLEMENTATION THERAPY

REACTIONS (37)
  - Inappropriate affect [Unknown]
  - Insomnia [Unknown]
  - Anaemia [Unknown]
  - Blood glucose fluctuation [Unknown]
  - Gait disturbance [Unknown]
  - Diabetes mellitus [Not Recovered/Not Resolved]
  - Pain in extremity [Recovering/Resolving]
  - Faecal incontinence [Unknown]
  - Dyspnoea exertional [Not Recovered/Not Resolved]
  - Diet noncompliance [Unknown]
  - Impaired self-care [Unknown]
  - Rhinorrhoea [Not Recovered/Not Resolved]
  - Cheilitis [Recovering/Resolving]
  - Pollakiuria [Unknown]
  - Nervousness [Unknown]
  - Memory impairment [Unknown]
  - Nervous system disorder [Unknown]
  - Weight fluctuation [Unknown]
  - Blood glucose increased [Unknown]
  - Eructation [Unknown]
  - Dyspnoea [Unknown]
  - Fatigue [Not Recovered/Not Resolved]
  - Headache [Not Recovered/Not Resolved]
  - Pruritus [Not Recovered/Not Resolved]
  - Dysphagia [Unknown]
  - Malaise [Unknown]
  - Psychomotor hyperactivity [Unknown]
  - Constipation [Not Recovered/Not Resolved]
  - Somnolence [Unknown]
  - Sedation [Unknown]
  - Weight increased [Unknown]
  - Dry mouth [Unknown]
  - Off label use [Unknown]
  - Off label use [Unknown]
  - Drug dose omission [Unknown]
  - Dyspepsia [Unknown]
  - Somnambulism [Unknown]
